FAERS Safety Report 17875696 (Version 4)
Quarter: 2020Q3

REPORT INFORMATION
  Report Type: Spontaneous
  Country: ES (occurrence: ES)
  Receive Date: 20200609
  Receipt Date: 20200703
  Transmission Date: 20201103
  Serious: Yes (Death, Life-Threatening, Hospitalization)
  Sender: FDA-Public Use
  Company Number: ES-ROCHE-2615833

PATIENT
  Age: 65 Year
  Sex: Female

DRUGS (9)
  1. FLUCONAZOLE. [Suspect]
     Active Substance: FLUCONAZOLE
     Indication: INFECTION PROPHYLAXIS
     Dosage: 400 MG/DL
     Route: 065
  2. LEVOFLOXACIN. [Suspect]
     Active Substance: LEVOFLOXACIN
     Indication: INFECTION PROPHYLAXIS
     Route: 065
  3. MYCOPHENOLATE MOFETIL. [Suspect]
     Active Substance: MYCOPHENOLATE MOFETIL
     Indication: IMMUNOSUPPRESSION
     Route: 065
  4. BUSULFAN. [Suspect]
     Active Substance: BUSULFAN
     Indication: BONE MARROW CONDITIONING REGIMEN
     Route: 065
  5. FLUDARABINE [Suspect]
     Active Substance: FLUDARABINE PHOSPHATE
     Indication: BONE MARROW CONDITIONING REGIMEN
     Route: 065
  6. GENOXAL [Suspect]
     Active Substance: CYCLOPHOSPHAMIDE
     Indication: PROPHYLAXIS AGAINST GRAFT VERSUS HOST DISEASE
     Route: 065
  7. CYCLOPHOSPHAMIDE. [Suspect]
     Active Substance: CYCLOPHOSPHAMIDE
     Indication: PROPHYLAXIS AGAINST GRAFT VERSUS HOST DISEASE
     Route: 065
  8. ENVARSUS XR [Suspect]
     Active Substance: TACROLIMUS
     Indication: IMMUNOSUPPRESSION
     Route: 065
  9. ACYCLOVIR [ACICLOVIR] [Suspect]
     Active Substance: ACYCLOVIR
     Indication: INFECTION PROPHYLAXIS
     Dosage: 800 MG, BID
     Route: 065

REACTIONS (27)
  - Pulmonary embolism [Unknown]
  - Fungal infection [Fatal]
  - Hypoxic-ischaemic encephalopathy [Unknown]
  - Thrombotic cerebral infarction [Unknown]
  - Cerebral fungal infection [Unknown]
  - Septic embolus [Unknown]
  - Cardio-respiratory arrest [Unknown]
  - Ischaemic stroke [Unknown]
  - Thrombocytopenia [Unknown]
  - Epistaxis [Unknown]
  - Neutropenia [Fatal]
  - Product use in unapproved indication [Unknown]
  - Disseminated mucormycosis [Fatal]
  - Fat necrosis [Unknown]
  - Necrosis ischaemic [Unknown]
  - Macroglossia [Unknown]
  - Off label use [Unknown]
  - Arteritis infective [Fatal]
  - Haemodynamic instability [Unknown]
  - Gastritis fungal [Unknown]
  - Infective thrombosis [Unknown]
  - Haematoma [Unknown]
  - Pulmonary infarction [Unknown]
  - Pancreatic necrosis [Unknown]
  - Mucosal inflammation [Unknown]
  - Respiratory failure [Unknown]
  - Haemorrhage [Unknown]
